FAERS Safety Report 7402628-3 (Version None)
Quarter: 2011Q2

REPORT INFORMATION
  Report Type: 
  Country: None (occurrence: None)
  Receive Date: 20110408
  Receipt Date: 20110404
  Transmission Date: 20111010
  Serious: Yes (Hospitalization)
  Sender: FDA-Public Use
  Company Number: DE-ABBOTT-11P-062-0717101-00

PATIENT
  Age: 25 Year
  Sex: Female
  Weight: 79 kg

DRUGS (4)
  1. BUDESONIDE [Concomitant]
     Indication: CROHN'S DISEASE
  2. AZATHIOPRINE [Concomitant]
     Indication: CROHN'S DISEASE
  3. HUMIRA [Suspect]
     Indication: CROHN'S DISEASE
     Route: 058
     Dates: start: 20090209, end: 20110101
  4. SYSTEMIC STEROID [Concomitant]
     Indication: CROHN'S DISEASE

REACTIONS (1)
  - ABORTION INDUCED [None]
